FAERS Safety Report 18408786 (Version 1)
Quarter: 2020Q4

REPORT INFORMATION
  Report Type: Spontaneous
  Country: US (occurrence: US)
  Receive Date: 20201020
  Receipt Date: 20201020
  Transmission Date: 20210114
  Serious: No
  Sender: FDA-Public Use
  Company Number: US-JNJFOC-20201022589

PATIENT
  Age: 71 Year
  Sex: Female
  Weight: 44.49 kg

DRUGS (1)
  1. WOMENS ROGAINE UNSCENTED [Suspect]
     Active Substance: MINOXIDIL
     Indication: ALOPECIA
     Dosage: HALF A CAPFULL, DATE OF LAST ADMINISTRATION: 09-OCT-2020
     Route: 061
     Dates: start: 202009

REACTIONS (2)
  - Application site erythema [Recovering/Resolving]
  - Application site pruritus [Recovering/Resolving]

NARRATIVE: CASE EVENT DATE: 20201008
